FAERS Safety Report 24411522 (Version 1)
Quarter: 2024Q4

REPORT INFORMATION
  Report Type: Spontaneous
  Country: US (occurrence: None)
  Receive Date: 20241007
  Receipt Date: 20241007
  Transmission Date: 20250115
  Serious: Yes (Hospitalization)
  Sender: Public
  Company Number: None

PATIENT
  Age: 75 Year
  Sex: Male
  Weight: 92 kg

DRUGS (1)
  1. KETAMINE HYDROCHLORIDE [Suspect]
     Active Substance: KETAMINE HYDROCHLORIDE
     Indication: Pain
     Dates: start: 20240415, end: 20240415

REACTIONS (5)
  - Sinus bradycardia [None]
  - Lethargy [None]
  - Dyspnoea [None]
  - Asthenia [None]
  - Memory impairment [None]

NARRATIVE: CASE EVENT DATE: 20240415
